FAERS Safety Report 6671304-7 (Version None)
Quarter: 2010Q2

REPORT INFORMATION
  Report Type: 
  Country: None (occurrence: None)
  Receive Date: 20100407
  Receipt Date: 20100406
  Transmission Date: 20101027
  Serious: Yes (Hospitalization)
  Sender: FDA-Public Use
  Company Number: A0853663A

PATIENT
  Age: 51 Year
  Sex: Female

DRUGS (4)
  1. ALLI [Suspect]
     Indication: WEIGHT LOSS DIET
  2. METHADONE HCL [Concomitant]
     Indication: PAIN
     Dosage: 20MG THREE TIMES PER DAY
     Route: 048
  3. MORPHINE [Concomitant]
     Indication: PAIN
     Dosage: 50MG FOUR TIMES PER DAY
     Route: 048
  4. VALIUM [Concomitant]
     Dosage: 10MG FOUR TIMES PER DAY
     Route: 048

REACTIONS (12)
  - ANXIETY [None]
  - BLOOD CALCIUM ABNORMAL [None]
  - BLOOD POTASSIUM ABNORMAL [None]
  - CEREBROVASCULAR ACCIDENT [None]
  - DEPRESSED LEVEL OF CONSCIOUSNESS [None]
  - ELECTROCARDIOGRAM ABNORMAL [None]
  - FEELING ABNORMAL [None]
  - HYPERTENSION [None]
  - INFLUENZA [None]
  - LETHARGY [None]
  - SYNCOPE [None]
  - VOMITING [None]
